FAERS Safety Report 8310476-5 (Version None)
Quarter: 2012Q2

REPORT INFORMATION
  Report Type: 
  Country: None (occurrence: None)
  Receive Date: 20120425
  Receipt Date: 20120413
  Transmission Date: 20120825
  Serious: Yes (Hospitalization)
  Sender: FDA-Public Use
  Company Number: NL-JNJFOC-20120313882

PATIENT
  Age: 42 Year
  Sex: Male

DRUGS (8)
  1. ANTIPSYCHOTICS [Suspect]
     Indication: PSYCHOTIC DISORDER
     Route: 065
  2. CANNABIS [Suspect]
     Indication: PRODUCT USED FOR UNKNOWN INDICATION
     Route: 065
  3. METHYLPHENIDATE HCL [Suspect]
     Indication: ATTENTION DEFICIT/HYPERACTIVITY DISORDER
     Route: 048
  4. METHYLPHENIDATE HCL [Suspect]
     Route: 048
  5. COCAINE [Suspect]
     Indication: PRODUCT USED FOR UNKNOWN INDICATION
     Route: 065
  6. METHYLPHENIDATE HCL [Suspect]
     Route: 048
  7. ANTIPSYCHOTICS [Suspect]
     Indication: ATTENTION DEFICIT/HYPERACTIVITY DISORDER
     Route: 065
  8. METHYLPHENIDATE HCL [Suspect]
     Indication: PSYCHOTIC DISORDER
     Route: 048

REACTIONS (7)
  - DYSPHORIA [None]
  - AGGRESSION [None]
  - HALLUCINATION, AUDITORY [None]
  - DISINHIBITION [None]
  - PSYCHOTIC DISORDER [None]
  - PERSECUTORY DELUSION [None]
  - TREATMENT NONCOMPLIANCE [None]
